FAERS Safety Report 18256742 (Version 3)
Quarter: 2020Q4

REPORT INFORMATION
  Report Type: Spontaneous
  Country: US (occurrence: US)
  Receive Date: 20200911
  Receipt Date: 20201014
  Transmission Date: 20210113
  Serious: No
  Sender: FDA-Public Use
  Company Number: US-009507513-2009USA003549

PATIENT
  Age: 23 Year
  Sex: Female

DRUGS (3)
  1. NEXPLANON [Suspect]
     Active Substance: ETONOGESTREL
     Dosage: 1 IMPLANT
     Route: 059
     Dates: start: 20160909, end: 20200922
  2. NEXPLANON [Suspect]
     Active Substance: ETONOGESTREL
     Dosage: DEVICE
     Route: 059
     Dates: start: 2013
  3. NEXPLANON [Suspect]
     Active Substance: ETONOGESTREL
     Dosage: DEVICE
     Route: 059
     Dates: start: 20200922

REACTIONS (6)
  - Complication of device insertion [Recovered/Resolved]
  - Device deployment issue [Recovered/Resolved]
  - Incorrect product administration duration [Unknown]
  - Complication of device removal [Recovered/Resolved]
  - Device issue [Recovered/Resolved]
  - Incision site swelling [Unknown]

NARRATIVE: CASE EVENT DATE: 20160909
